FAERS Safety Report 10672163 (Version 1)
Quarter: 2014Q4

REPORT INFORMATION
  Report Type: Other
  Country: NL (occurrence: NL)
  Receive Date: 20141223
  Receipt Date: 20141223
  Transmission Date: 20150529
  Serious: Yes (Other)
  Sender: FDA-Public Use
  Company Number: NL-MYLANLABS-2014M1013904

PATIENT

DRUGS (1)
  1. ETHINYLESTRADIOL,LEVONORGESTREL [Suspect]
     Active Substance: ETHINYL ESTRADIOL\LEVONORGESTREL
     Indication: CONTRACEPTION
     Dosage: 1 KEER PER DAG 1 STUK(S)
     Route: 048
     Dates: start: 2008, end: 20141021

REACTIONS (3)
  - Therapeutic response unexpected [Recovered/Resolved with Sequelae]
  - Acne [Recovered/Resolved with Sequelae]
  - Metrorrhagia [Recovered/Resolved with Sequelae]

NARRATIVE: CASE EVENT DATE: 20141001
